FAERS Safety Report 4998426-0 (Version None)
Quarter: 2006Q2

REPORT INFORMATION
  Report Type: 
  Country: None (occurrence: None)
  Receive Date: 20060510
  Receipt Date: 20060306
  Transmission Date: 20061013
  Serious: Yes (Other)
  Sender: FDA-Public Use
  Company Number: US-GLAXOSMITHKLINE-A0596286A

PATIENT
  Sex: Male

DRUGS (2)
  1. WELLBUTRIN XL [Suspect]
     Indication: DEPRESSION
     Dosage: 150MG PER DAY
     Route: 048
     Dates: start: 20060208, end: 20060212
  2. ONE A DAY VITAMIN [Concomitant]

REACTIONS (12)
  - ANXIETY [None]
  - CONVULSION [None]
  - DISTURBANCE IN ATTENTION [None]
  - DYSPNOEA [None]
  - HYPOAESTHESIA [None]
  - HYPOTHYROIDISM [None]
  - INSOMNIA [None]
  - MENTAL IMPAIRMENT [None]
  - MUSCULOSKELETAL STIFFNESS [None]
  - OFF LABEL USE [None]
  - PANIC ATTACK [None]
  - PARAESTHESIA [None]
